FAERS Safety Report 26161224 (Version 1)
Quarter: 2025Q4

REPORT INFORMATION
  Report Type: Spontaneous
  Country: US (occurrence: US)
  Receive Date: 20251216
  Receipt Date: 20251216
  Transmission Date: 20260119
  Serious: No
  Sender: RANBAXY
  Company Number: US-SUN PHARMACEUTICAL INDUSTRIES LTD-2025R1-537637

PATIENT
  Sex: Female

DRUGS (4)
  1. LISDEXAMFETAMINE [Suspect]
     Active Substance: LISDEXAMFETAMINE
     Indication: Product used for unknown indication
     Dosage: 50 MILLIGRAM
     Route: 048
     Dates: start: 20251112
  2. LISDEXAMFETAMINE [Suspect]
     Active Substance: LISDEXAMFETAMINE
     Dosage: 50 MILLIGRAM
     Route: 048
  3. LISDEXAMFETAMINE [Concomitant]
     Active Substance: LISDEXAMFETAMINE
     Indication: Product used for unknown indication
     Dosage: 20 MILLIGRAM
     Route: 048
  4. LISDEXAMFETAMINE [Concomitant]
     Active Substance: LISDEXAMFETAMINE
     Dosage: 20 MILLIGRAM
     Route: 048

REACTIONS (5)
  - Drug ineffective [Unknown]
  - Recalled product administered [Unknown]
  - Depression [Unknown]
  - Tearfulness [Unknown]
  - Apathy [Unknown]

NARRATIVE: CASE EVENT DATE: 20251112
